FAERS Safety Report 4742430-4 (Version None)
Quarter: 2005Q3

REPORT INFORMATION
  Report Type: 
  Country: None (occurrence: None)
  Receive Date: 20050808
  Receipt Date: 20050729
  Transmission Date: 20060218
  Serious: Yes (Death, Other)
  Sender: FDA-Public Use
  Company Number: 2005097972

PATIENT
  Age: 34 Year
  Sex: Female

DRUGS (2)
  1. CELEBREX [Suspect]
     Indication: MUSCLE STRAIN
     Dosage: 200 MG (200 MG, 1 IN 1 D), ORAL
     Route: 048
     Dates: start: 20050509, end: 20050527
  2. NASONEX [Concomitant]

REACTIONS (2)
  - ARRHYTHMIA [None]
  - FALL [None]
